FAERS Safety Report 7333377-8 (Version None)
Quarter: 2011Q1

REPORT INFORMATION
  Report Type: 
  Country: None (occurrence: None)
  Receive Date: 20110304
  Receipt Date: 20110222
  Transmission Date: 20110831
  Serious: Yes (Hospitalization)
  Sender: FDA-Public Use
  Company Number: US-MYLANLABS-2011S1003813

PATIENT
  Sex: Male

DRUGS (1)
  1. FUROSEMIDE TABLETS, USP [Suspect]

REACTIONS (2)
  - DYSURIA [None]
  - OEDEMA [None]
